FAERS Safety Report 14091675 (Version 1)
Quarter: 2017Q4

REPORT INFORMATION
  Report Type: Spontaneous
  Country: RU (occurrence: RU)
  Receive Date: 20171016
  Receipt Date: 20171016
  Transmission Date: 20180321
  Serious: Yes (Other)
  Sender: FDA-Public Use
  Company Number: RU-SUN PHARMACEUTICAL INDUSTRIES LTD-2017R3-151678

PATIENT
  Age: 30 Year
  Sex: Female
  Weight: 30 kg

DRUGS (1)
  1. CIFRAN CT [Suspect]
     Active Substance: CIPROFLOXACIN\TINIDAZOLE
     Indication: PERICORONITIS
     Dosage: 500 MG + 600 MG DAILY
     Route: 048
     Dates: start: 20170926, end: 20170928

REACTIONS (6)
  - Muscular weakness [Recovered/Resolved]
  - Urticaria [Recovered/Resolved]
  - Blood pressure decreased [Recovered/Resolved]
  - Fatigue [Recovered/Resolved]
  - Pallor [Recovered/Resolved]
  - Hypokinesia [Recovered/Resolved]

NARRATIVE: CASE EVENT DATE: 20170926
